FAERS Safety Report 7601715-4 (Version None)
Quarter: 2011Q2

REPORT INFORMATION
  Report Type: 
  Country: None (occurrence: None)
  Receive Date: 20110630
  Receipt Date: 20110615
  Transmission Date: 20111010
  Serious: Yes (Life-Threatening, Hospitalization, Disabling, Other)
  Sender: FDA-Public Use
  Company Number: 2011AP001244

PATIENT
  Sex: Female

DRUGS (8)
  1. XANAX [Suspect]
     Indication: PRODUCT USED FOR UNKNOWN INDICATION
     Dosage: PO
     Route: 048
  2. CLONAZEPAM [Suspect]
     Indication: PRODUCT USED FOR UNKNOWN INDICATION
  3. TRAZODONE HYDROCHLORIDE [Suspect]
     Indication: INSOMNIA
     Dosage: 200 MG, HS, PO
     Route: 048
  4. NEURONTIN [Suspect]
     Indication: MUSCLE DISORDER
     Dosage: 300 MG, TID, PO
     Route: 048
     Dates: start: 20080101
  5. NEURONTIN [Suspect]
     Indication: FIBROMYALGIA
     Dosage: 300 MG, TID, PO
     Route: 048
     Dates: start: 20080101
  6. NEURONTIN [Suspect]
     Indication: MUSCLE DISORDER
     Dosage: 300 MG, TID, PO
     Route: 048
     Dates: start: 20110414, end: 20110525
  7. NEURONTIN [Suspect]
     Indication: FIBROMYALGIA
     Dosage: 300 MG, TID, PO
     Route: 048
     Dates: start: 20110414, end: 20110525
  8. ZIPRASIDONE HCL [Concomitant]

REACTIONS (38)
  - CONSTIPATION [None]
  - DIPLOPIA [None]
  - COLD SWEAT [None]
  - MULTIPLE DRUG OVERDOSE INTENTIONAL [None]
  - COORDINATION ABNORMAL [None]
  - ABDOMINAL PAIN [None]
  - BONE PAIN [None]
  - HYPERTENSION [None]
  - CONFUSIONAL STATE [None]
  - RESTLESS LEGS SYNDROME [None]
  - DEMENTIA [None]
  - DEPRESSION [None]
  - GASTROINTESTINAL VIRAL INFECTION [None]
  - DECREASED APPETITE [None]
  - ABDOMINAL DISTENSION [None]
  - AGGRESSION [None]
  - MOOD SWINGS [None]
  - DEHYDRATION [None]
  - URINE OUTPUT INCREASED [None]
  - HYPERHIDROSIS [None]
  - BACK PAIN [None]
  - ARTHRALGIA [None]
  - ASTHENIA [None]
  - NIGHTMARE [None]
  - DELUSION [None]
  - BALANCE DISORDER [None]
  - MANIA [None]
  - SUICIDE ATTEMPT [None]
  - AGITATION [None]
  - ABNORMAL DREAMS [None]
  - PAIN IN EXTREMITY [None]
  - HEART RATE INCREASED [None]
  - URINARY TRACT INFECTION VIRAL [None]
  - GAIT DISTURBANCE [None]
  - THINKING ABNORMAL [None]
  - SWELLING [None]
  - HEADACHE [None]
  - FEAR [None]
